FAERS Safety Report 9303469 (Version 1)
Quarter: 2013Q2

REPORT INFORMATION
  Report Type: Spontaneous
  Country: US (occurrence: None)
  Receive Date: 20130521
  Receipt Date: 20130521
  Transmission Date: 20140414
  Serious: No
  Sender: FDA-Public Use
  Company Number: None

PATIENT
  Age: 5 Month
  Sex: Female
  Weight: 6.35 kg

DRUGS (1)
  1. PREVACID [Suspect]
     Indication: GASTROOESOPHAGEAL REFLUX DISEASE
     Dosage: 15MG  1/2 CAP BID  OPENED AND SPRINKLED ON FOOD
     Dates: start: 20130423

REACTIONS (3)
  - Drug ineffective [None]
  - Incorrect dose administered [None]
  - No therapeutic response [None]
